FAERS Safety Report 17855804 (Version 1)
Quarter: 2020Q2

REPORT INFORMATION
  Report Type: Spontaneous
  Country: ES (occurrence: ES)
  Receive Date: 20200603
  Receipt Date: 20200603
  Transmission Date: 20200714
  Serious: Yes (Other)
  Sender: FDA-Public Use
  Company Number: ES-TEVA-2020-ES-1242838

PATIENT
  Age: 12 Year
  Sex: Female
  Weight: 38 kg

DRUGS (6)
  1. CITARABINA (124A) [Suspect]
     Active Substance: CYTARABINE
     Indication: ACUTE MYELOID LEUKAEMIA
     Dosage: CYTARABINE 2000MG / M2 (TOTAL 5 DOSES)
     Route: 042
     Dates: start: 20191023, end: 20191026
  2. PARACETAMOL (12A) [Suspect]
     Active Substance: ACETAMINOPHEN
     Indication: FEBRILE NEUTROPENIA
     Dosage: 430MG / 8H IF YOU NEED
     Route: 042
     Dates: start: 20191019, end: 20191024
  3. LINEZOLID (1279A) [Suspect]
     Active Substance: LINEZOLID
     Indication: FEBRILE NEUTROPENIA
     Dosage: 400MG/12H
     Route: 042
     Dates: start: 20191020, end: 20191025
  4. METOTREXATO (418A) [Suspect]
     Active Substance: METHOTREXATE
     Indication: ACUTE MYELOID LEUKAEMIA
     Dosage: INTRATHECAL METHOTREXATE ON THE FIRST DAY OF THE CYCLE
     Route: 037
     Dates: start: 20191023, end: 20191023
  5. CEFEPIMA (7362A) [Suspect]
     Active Substance: CEFEPIME HYDROCHLORIDE
     Indication: FEBRILE NEUTROPENIA
     Dosage: 2 GRAM
     Route: 042
     Dates: start: 20191019, end: 20191025
  6. FLUDARABINE [Suspect]
     Active Substance: FLUDARABINE PHOSPHATE
     Indication: ACUTE MYELOID LEUKAEMIA
     Dosage: FLUDARABINA 30MG/M2 (TOTAL 5 DOSIS)
     Route: 042
     Dates: start: 20191023, end: 20191026

REACTIONS (2)
  - Hyperbilirubinaemia [Recovered/Resolved]
  - Hepatitis [Recovered/Resolved]

NARRATIVE: CASE EVENT DATE: 20191031
